FAERS Safety Report 25903334 (Version 2)
Quarter: 2025Q4

REPORT INFORMATION
  Report Type: Report from Study
  Country: CN (occurrence: CN)
  Receive Date: 20251009
  Receipt Date: 20251014
  Transmission Date: 20260117
  Serious: Yes (Other)
  Sender: JOHNSON AND JOHNSON
  Company Number: CN-JNJFOC-20251000031

PATIENT

DRUGS (1)
  1. USTEKINUMAB [Suspect]
     Active Substance: USTEKINUMAB
     Indication: Crohn^s disease
     Route: 058

REACTIONS (8)
  - Hepatotoxicity [Unknown]
  - Pulmonary tuberculosis [Unknown]
  - Dermatitis atopic [Unknown]
  - Rash [Unknown]
  - Lymphadenopathy [Unknown]
  - Headache [Unknown]
  - Dysgeusia [Unknown]
  - Folliculitis [Unknown]
